FAERS Safety Report 5606824-7 (Version None)
Quarter: 2008Q1

REPORT INFORMATION
  Report Type: 
  Country: None (occurrence: None)
  Receive Date: 20080129
  Receipt Date: 20080117
  Transmission Date: 20080703
  Serious: Yes (Disabling, Other)
  Sender: FDA-Public Use
  Company Number: BR-PFIZER INC-2007108992

PATIENT
  Sex: Female
  Weight: 65 kg

DRUGS (2)
  1. CHANTIX [Suspect]
     Indication: SMOKING CESSATION THERAPY
     Route: 048
  2. NEURONTIN [Suspect]
     Indication: TRIGEMINAL NEURALGIA
     Route: 048

REACTIONS (8)
  - DIARRHOEA [None]
  - FLUID RETENTION [None]
  - LOOSE TOOTH [None]
  - MEMORY IMPAIRMENT [None]
  - MOTOR DYSFUNCTION [None]
  - NAUSEA [None]
  - SOMNOLENCE [None]
  - TRIGEMINAL NEURALGIA [None]
